FAERS Safety Report 22007864 (Version 8)
Quarter: 2023Q1

REPORT INFORMATION
  Report Type: Report from Study
  Country: US (occurrence: US)
  Receive Date: 20230218
  Receipt Date: 20230329
  Transmission Date: 20230418
  Serious: Yes (Other)
  Sender: FDA-Public Use
  Company Number: US-002147023-NVSC2023US038054

PATIENT
  Sex: Female

DRUGS (4)
  1. GILENYA [Suspect]
     Active Substance: FINGOLIMOD HYDROCHLORIDE
     Indication: Multiple sclerosis
     Dosage: 0.5 MG, QD
     Route: 065
     Dates: start: 2016
  2. GILENYA [Suspect]
     Active Substance: FINGOLIMOD HYDROCHLORIDE
     Indication: Relapsing-remitting multiple sclerosis
     Dosage: UNK, QOD
     Route: 065
  3. CHOLECALCIFEROL [Concomitant]
     Active Substance: CHOLECALCIFEROL
     Indication: Vitamin D deficiency
     Dosage: 1 DOSAGE FORM, QD ((5,000 UNITS TOTAL) MORNIN (REFILLS 11)
     Route: 048
     Dates: start: 20230123
  4. PREDNISONE [Concomitant]
     Active Substance: PREDNISONE
     Indication: Hypersensitivity
     Dosage: 1 DOSAGE FORM, QD (MORNING FOR 14 DAYS) (REFILLS 0)
     Route: 048
     Dates: start: 20230302, end: 20230304

REACTIONS (18)
  - Multiple sclerosis relapse [Unknown]
  - Monoplegia [Unknown]
  - Paralysis [Unknown]
  - Hypoaesthesia [Unknown]
  - Paraesthesia [Unknown]
  - Peripheral swelling [Unknown]
  - Pain in extremity [Unknown]
  - Musculoskeletal stiffness [Unknown]
  - Lymphopenia [Unknown]
  - Decreased immune responsiveness [Unknown]
  - Pituitary tumour benign [Unknown]
  - Blood prolactin increased [Unknown]
  - Arthralgia [Unknown]
  - Hypertension [Unknown]
  - Bacterial vaginosis [Unknown]
  - Dizziness [Unknown]
  - Bacterial infection [Unknown]
  - Product administration interrupted [Unknown]
